FAERS Safety Report 23038078 (Version 1)
Quarter: 2023Q4

REPORT INFORMATION
  Report Type: Spontaneous
  Country: CN (occurrence: CN)
  Receive Date: 20231006
  Receipt Date: 20231006
  Transmission Date: 20240109
  Serious: Yes (Hospitalization)
  Sender: FDA-Public Use
  Company Number: CN-ELI_LILLY_AND_COMPANY-CN202309016256

PATIENT
  Age: 49 Year
  Sex: Female
  Weight: 57 kg

DRUGS (3)
  1. ALIMTA [Suspect]
     Active Substance: PEMETREXED DISODIUM
     Indication: Malignant peritoneal neoplasm
     Dosage: 0.74 G, DAILY
     Route: 041
     Dates: start: 20230909, end: 20230909
  2. CISPLATIN [Suspect]
     Active Substance: CISPLATIN
     Indication: Malignant peritoneal neoplasm
     Dosage: 37 MG, DAILY
     Route: 041
     Dates: start: 20230909, end: 20230911
  3. SINTILIMAB [Suspect]
     Active Substance: SINTILIMAB
     Indication: Malignant peritoneal neoplasm
     Dosage: 100 MG, DAILY
     Route: 041
     Dates: start: 20230909, end: 20230909

REACTIONS (4)
  - Electrolyte imbalance [Recovering/Resolving]
  - Myelosuppression [Recovering/Resolving]
  - Vomiting [Recovering/Resolving]
  - Anaemia [Recovering/Resolving]

NARRATIVE: CASE EVENT DATE: 20230917
